FAERS Safety Report 23523530 (Version 1)
Quarter: 2024Q1

REPORT INFORMATION
  Report Type: 
  Country: None (occurrence: None)
  Receive Date: 20240214
  Receipt Date: 20240214
  Transmission Date: 20240410
  Serious: No
  Sender: FDA-Public Use
  Company Number: US-ROCHE-3209947

PATIENT
  Age: 57 Year
  Weight: 131 kg

DRUGS (47)
  1. RANIBIZUMAB [Suspect]
     Active Substance: RANIBIZUMAB
     Dosage: DOSE OF STUDY DRUG FIRST ADMINISTERED: 10 MG/ML, DOSE LAST STUDY DRUG ADMIN PRIOR AE/SAE: 100 MG/ML
     Dates: start: 20210223
  2. RANIBIZUMAB [Suspect]
     Active Substance: RANIBIZUMAB
  3. RANIBIZUMAB [Suspect]
     Active Substance: RANIBIZUMAB
  4. RANIBIZUMAB [Suspect]
     Active Substance: RANIBIZUMAB
  5. RANIBIZUMAB [Suspect]
     Active Substance: RANIBIZUMAB
  6. RANIBIZUMAB [Suspect]
     Active Substance: RANIBIZUMAB
  7. IBUPROFEN [Concomitant]
     Active Substance: IBUPROFEN
     Dosage: 600 MG/ML
     Dates: start: 20200721
  8. ADMELOG [Concomitant]
     Active Substance: INSULIN LISPRO
     Dates: start: 20190621
  9. ATORVASTATIN [Concomitant]
     Active Substance: ATORVASTATIN
     Dosage: 80 MG/ML
     Dates: start: 20210818
  10. ASPIRIN [Concomitant]
     Active Substance: ASPIRIN
     Dosage: 325 MG/ML
     Dates: start: 20210912
  11. CLOPIDOGREL [Concomitant]
     Active Substance: CLOPIDOGREL BISULFATE
     Dosage: 75 MG/ML
     Dates: start: 20210819
  12. COLLAGENASE [Concomitant]
     Active Substance: COLLAGENASE CLOSTRIDIUM HISTOLYTICUM
     Dosage: 250 MG/ML
     Dates: start: 20210819
  13. LASIX [Concomitant]
     Active Substance: FUROSEMIDE
     Dosage: 20 MG/ML
     Dates: start: 20210819
  14. LASIX [Concomitant]
     Active Substance: FUROSEMIDE
     Dosage: 20 MG/ML
     Dates: start: 20221114
  15. METOPROLOL SUCCINATE [Concomitant]
     Active Substance: METOPROLOL SUCCINATE
     Dosage: 50 MG/ML
     Dates: start: 20210819
  16. POLYETHYLENE GLYCOL [Concomitant]
     Active Substance: POLYETHYLENE GLYCOL
     Dates: start: 20210819
  17. SEMGLEE [Concomitant]
     Dosage: 100 U
     Dates: start: 20210927
  18. SODIUM BICARBONATE [Concomitant]
     Active Substance: SODIUM BICARBONATE
     Dosage: 650 MG/ML
     Dates: start: 20210927
  19. LIPITOR [Concomitant]
     Active Substance: ATORVASTATIN CALCIUM
     Dosage: 10 MG/ML
  20. LISINOPRIL [Concomitant]
     Active Substance: LISINOPRIL
     Dosage: 20 MG/ML
  21. ZOVIRAX [Concomitant]
     Active Substance: ACYCLOVIR
     Dosage: 400 MG/ML
     Dates: start: 20191231
  22. PREDNISOLONE [Concomitant]
     Active Substance: PREDNISOLONE
     Dates: start: 20220719, end: 20220816
  23. PREDNISOLONE [Concomitant]
     Active Substance: PREDNISOLONE
     Dates: start: 20220623, end: 20220719
  24. KETOROLAC [Concomitant]
     Active Substance: KETOROLAC TROMETHAMINE
     Dates: start: 20220719, end: 20220816
  25. KETOROLAC [Concomitant]
     Active Substance: KETOROLAC TROMETHAMINE
     Dates: start: 20220816, end: 20220830
  26. KETOROLAC [Concomitant]
     Active Substance: KETOROLAC TROMETHAMINE
     Dates: start: 20220830, end: 20221004
  27. KETOROLAC [Concomitant]
     Active Substance: KETOROLAC TROMETHAMINE
     Dates: start: 20221130, end: 20240116
  28. TIMOLOL [Concomitant]
     Active Substance: TIMOLOL
     Dates: start: 20220719
  29. TOBRADEX [Concomitant]
     Active Substance: DEXAMETHASONE\TOBRAMYCIN
     Dates: start: 20220622
  30. OFLOXACIN [Concomitant]
     Active Substance: OFLOXACIN
     Dates: start: 20220623
  31. OFLOXACIN [Concomitant]
     Active Substance: OFLOXACIN
     Dates: start: 20221227, end: 20221230
  32. OFLOXACIN [Concomitant]
     Active Substance: OFLOXACIN
     Dates: start: 20221108
  33. OFLOXACIN [Concomitant]
     Active Substance: OFLOXACIN
     Dates: start: 20220508, end: 20230512
  34. OFLOXACIN [Concomitant]
     Active Substance: OFLOXACIN
     Dates: start: 20231010, end: 20231015
  35. MEROPENEM [Concomitant]
     Active Substance: MEROPENEM
     Dosage: 500 MG/ML
     Dates: start: 20220920, end: 20221116
  36. GABAPENTIN [Concomitant]
     Active Substance: GABAPENTIN
     Dosage: 100 MG/ML
     Dates: start: 20220920, end: 20221114
  37. GABAPENTIN [Concomitant]
     Active Substance: GABAPENTIN
     Dates: start: 20221114, end: 20230713
  38. GABAPENTIN [Concomitant]
     Active Substance: GABAPENTIN
     Dates: start: 20230713
  39. PNEUMOVAX 23 [Concomitant]
     Active Substance: PNEUMOCOCCAL VACCINE, POLYVALENT 23
     Dosage: 25 OTHER
     Dates: start: 20220928, end: 20220928
  40. CELEXA [Concomitant]
     Active Substance: CITALOPRAM HYDROBROMIDE
  41. LOSARTAN [Concomitant]
     Active Substance: LOSARTAN
     Dosage: 25 MG/ML
     Dates: start: 20221114, end: 20230416
  42. AMLODIPINE [Concomitant]
     Active Substance: AMLODIPINE BESYLATE
  43. PREDNISONE [Concomitant]
     Active Substance: PREDNISONE
  44. ISOSORBIDE DINITRATE [Concomitant]
     Active Substance: ISOSORBIDE DINITRATE
     Dosage: 10 MG/ML
     Dates: start: 20210818
  45. ERGOCALCIFEROL [Concomitant]
     Active Substance: ERGOCALCIFEROL
     Dosage: 5000 U
     Dates: start: 20230322
  46. ZAROXOLYN [Concomitant]
     Active Substance: METOLAZONE
     Dates: start: 20230622
  47. HYDROCORTISONE [Concomitant]
     Active Substance: HYDROCORTISONE
     Dates: start: 20230807

REACTIONS (1)
  - Conjunctival bleb [None]

NARRATIVE: CASE EVENT DATE: 20220816
